FAERS Safety Report 16585620 (Version 1)
Quarter: 2019Q3

REPORT INFORMATION
  Report Type: Spontaneous
  Country: US (occurrence: US)
  Receive Date: 20190604
  Receipt Date: 20190604
  Transmission Date: 20191004
  Serious: No
  Sender: FDA-Public Use
  Company Number: None

PATIENT
  Age: 47 Year
  Sex: Female

DRUGS (2)
  1. IBRANCE [Suspect]
     Active Substance: PALBOCICLIB
     Dates: start: 201802
  2. FALSEDEX [Concomitant]

REACTIONS (3)
  - Feeling abnormal [None]
  - Irritability [None]
  - Therapy cessation [None]

NARRATIVE: CASE EVENT DATE: 20190604
